FAERS Safety Report 13563769 (Version 1)
Quarter: 2017Q2

REPORT INFORMATION
  Report Type: Spontaneous
  Country: AU (occurrence: AU)
  Receive Date: 20170519
  Receipt Date: 20170519
  Transmission Date: 20170830
  Serious: Yes (Death, Hospitalization, Other)
  Sender: FDA-Public Use
  Company Number: AU-PFIZER INC-2017215048

PATIENT
  Age: 65 Year
  Sex: Male

DRUGS (4)
  1. AXITINIB [Suspect]
     Active Substance: AXITINIB
     Dosage: 5 MG, 2X/DAY
     Dates: start: 201603
  2. AXITINIB [Suspect]
     Active Substance: AXITINIB
     Dosage: 3 MG, 2X/DAY
  3. AXITINIB [Suspect]
     Active Substance: AXITINIB
     Dosage: 10 MG, 2X/DAY
     Dates: start: 201608
  4. AXITINIB [Suspect]
     Active Substance: AXITINIB
     Dosage: 7 MG, 2X/DAY
     Dates: start: 201608

REACTIONS (8)
  - Seizure [Unknown]
  - Brain stem infarction [Unknown]
  - Dysphonia [Unknown]
  - Stomatitis [Unknown]
  - Lower respiratory tract infection [Fatal]
  - Hypertension [Unknown]
  - General physical health deterioration [Fatal]
  - Skin lesion [Recovering/Resolving]

NARRATIVE: CASE EVENT DATE: 201605
